FAERS Safety Report 16633476 (Version 1)
Quarter: 2019Q3

REPORT INFORMATION
  Report Type: Spontaneous
  Country: US (occurrence: US)
  Receive Date: 20190725
  Receipt Date: 20190725
  Transmission Date: 20191004
  Serious: No
  Sender: FDA-Public Use
  Company Number: US-BRACCO-2019US01704

PATIENT
  Age: 55 Year
  Sex: Female

DRUGS (1)
  1. E-Z-PAQUE [Suspect]
     Active Substance: BARIUM SULFATE
     Indication: BARIUM SWALLOW
     Dosage: 355 ML, SINGLE
     Route: 048
     Dates: start: 20190405, end: 20190405

REACTIONS (2)
  - Contraindicated product administered [Recovered/Resolved]
  - Gastrointestinal pain [Recovered/Resolved]

NARRATIVE: CASE EVENT DATE: 20190405
